FAERS Safety Report 9632106 (Version 1)
Quarter: 2013Q4

REPORT INFORMATION
  Report Type: Spontaneous
  Country: JP (occurrence: JP)
  Receive Date: 20131018
  Receipt Date: 20131018
  Transmission Date: 20140711
  Serious: Yes (Other)
  Sender: FDA-Public Use
  Company Number: JP-EISAI-201304751

PATIENT
  Age: 81 Year
  Sex: Male
  Weight: 50 kg

DRUGS (4)
  1. LUNESTA [Suspect]
     Indication: INSOMNIA
     Route: 048
     Dates: start: 20130814
  2. DEPAKENE-R [Concomitant]
     Indication: PRODUCT USED FOR UNKNOWN INDICATION
  3. MEMARY [Concomitant]
     Indication: PRODUCT USED FOR UNKNOWN INDICATION
  4. MYSLEE [Concomitant]
     Indication: PRODUCT USED FOR UNKNOWN INDICATION
     Dates: end: 20130814

REACTIONS (1)
  - Delirium [Recovered/Resolved]
